FAERS Safety Report 20724005 (Version 1)
Quarter: 2022Q2

REPORT INFORMATION
  Report Type: Report from Study
  Country: MA (occurrence: MA)
  Receive Date: 20220419
  Receipt Date: 20220419
  Transmission Date: 20220720
  Serious: Yes (Other)
  Sender: FDA-Public Use
  Company Number: MA-BAXTER-2022BAX008482

PATIENT
  Age: 44 Year
  Sex: Female

DRUGS (1)
  1. IFOSFAMIDE [Suspect]
     Active Substance: IFOSFAMIDE
     Indication: Dermatofibrosarcoma protuberans
     Route: 065

REACTIONS (1)
  - Disease progression [Unknown]
